FAERS Safety Report 8506604-9 (Version None)
Quarter: 2012Q3

REPORT INFORMATION
  Report Type: 
  Country: None (occurrence: None)
  Receive Date: 20120702
  Receipt Date: 20120621
  Transmission Date: 20120928
  Serious: Yes (Other)
  Sender: FDA-Public Use
  Company Number: ACO_29573_2012

PATIENT
  Age: 56 Year
  Sex: Male
  Weight: 68 kg

DRUGS (3)
  1. ALL OTHER THERAPEUTIC PRODUCTS [Concomitant]
  2. AMPYRA [Suspect]
     Indication: GAIT DISTURBANCE
     Dosage: 10MG BID, ORAL
     Route: 048
     Dates: start: 20110801, end: 20110101
  3. AMPYRA [Suspect]
     Indication: BALANCE DISORDER
     Dosage: 10MG BID, ORAL
     Route: 048
     Dates: start: 20110801, end: 20110101

REACTIONS (3)
  - MYOCARDIAL INFARCTION [None]
  - BALANCE DISORDER [None]
  - MULTIPLE SCLEROSIS RELAPSE [None]
